FAERS Safety Report 7905139-1 (Version None)
Quarter: 2011Q4

REPORT INFORMATION
  Report Type: 
  Country: None (occurrence: None)
  Receive Date: 20111109
  Receipt Date: 20111025
  Transmission Date: 20120403
  Serious: Yes (Other)
  Sender: FDA-Public Use
  Company Number: US-WATSON-2011-18936

PATIENT
  Age: 11 Year
  Sex: Male

DRUGS (2)
  1. DAPSONE [Suspect]
     Indication: PEMPHIGUS
  2. PREDNISONE [Suspect]
     Indication: PEMPHIGUS
     Dosage: 200 MG DAILY

REACTIONS (4)
  - GROWTH RETARDATION [None]
  - SUBCUTANEOUS ABSCESS [None]
  - CELLULITIS [None]
  - VIRAL INFECTION [None]
